FAERS Safety Report 18664431 (Version 1)
Quarter: 2020Q4

REPORT INFORMATION
  Report Type: Spontaneous
  Country: GB (occurrence: GB)
  Receive Date: 20201225
  Receipt Date: 20201225
  Transmission Date: 20210114
  Serious: Yes (Death, Other)
  Sender: FDA-Public Use
  Company Number: GB-ACCORD-211910

PATIENT
  Age: 69 Year
  Sex: Male
  Weight: 83.75 kg

DRUGS (1)
  1. APIXABAN [Suspect]
     Active Substance: APIXABAN
     Indication: ATRIAL FIBRILLATION
     Route: 048

REACTIONS (5)
  - Circulatory collapse [Unknown]
  - Vomiting [Unknown]
  - Cerebral haemorrhage [Fatal]
  - Facial paralysis [Unknown]
  - Headache [Unknown]

NARRATIVE: CASE EVENT DATE: 20201207
